FAERS Safety Report 6678861-5 (Version None)
Quarter: 2010Q2

REPORT INFORMATION
  Report Type: 
  Country: None (occurrence: None)
  Receive Date: 20100412
  Receipt Date: 20100412
  Transmission Date: 20101027
  Serious: Yes (Other)
  Sender: FDA-Public Use
  Company Number: None

PATIENT
  Sex: Female
  Weight: 55.3388 kg

DRUGS (1)
  1. VIGAMOX [Suspect]
     Indication: CONJUNCTIVITIS
     Dosage: 2 DROPS EACH EYE 4X/DAY OPHTHALMIC
     Route: 047
     Dates: start: 20100409, end: 20100410

REACTIONS (2)
  - DIPLOPIA [None]
  - VISION BLURRED [None]
